FAERS Safety Report 9656375 (Version 3)
Quarter: 2013Q4

REPORT INFORMATION
  Report Type: Report from Study
  Country: NG (occurrence: NG)
  Receive Date: 20131030
  Receipt Date: 20131209
  Transmission Date: 20140711
  Serious: Yes (Death, Congenital Anomaly)
  Sender: FDA-Public Use
  Company Number: NG-B.I. PHARMACEUTICALS,INC./RIDGEFIELD-2013-BI-33928BI

PATIENT
  Sex: Male
  Weight: 2.8 kg

DRUGS (2)
  1. VIRAMUNE [Suspect]
     Indication: PROPHYLAXIS AGAINST HIV INFECTION
     Route: 064
  2. TENOFOVIR DISOPROXIL FUMARATE+EMTRICITABINE (TRUVADA, TVD) [Concomitant]
     Route: 064

REACTIONS (1)
  - Spina bifida [Fatal]
